FAERS Safety Report 19428148 (Version 2)
Quarter: 2021Q2

REPORT INFORMATION
  Report Type: Spontaneous
  Country: CA (occurrence: CA)
  Receive Date: 20210616
  Receipt Date: 20210625
  Transmission Date: 20210717
  Serious: Yes (Other)
  Sender: FDA-Public Use
  Company Number: CA-JNJFOC-20210624960

PATIENT
  Age: 49 Year
  Sex: Male

DRUGS (3)
  1. INFLIXIMAB, RECOMBINANT [Suspect]
     Active Substance: INFLIXIMAB
     Indication: COLITIS ULCERATIVE
     Route: 042
  2. PREDNISONE. [Concomitant]
     Active Substance: PREDNISONE
     Route: 065
  3. PREDNISONE. [Concomitant]
     Active Substance: PREDNISONE
     Route: 065

REACTIONS (23)
  - Weight increased [Unknown]
  - Pallor [Unknown]
  - Dizziness [Unknown]
  - Fatigue [Unknown]
  - Drug level below therapeutic [Unknown]
  - Polyp [Unknown]
  - Weight fluctuation [Unknown]
  - Anaemia [Unknown]
  - White blood cell count decreased [Unknown]
  - Condition aggravated [Unknown]
  - Pyrexia [Unknown]
  - Incorrect dose administered [Unknown]
  - Abnormal behaviour [Unknown]
  - Heart rate increased [Unknown]
  - Insomnia [Unknown]
  - Therapeutic product effect incomplete [Unknown]
  - Off label use [Unknown]
  - C-reactive protein increased [Unknown]
  - Mean cell haemoglobin concentration increased [Unknown]
  - Neutrophil count decreased [Unknown]
  - Arthralgia [Unknown]
  - Blood pressure diastolic decreased [Unknown]
  - Intentional product use issue [Unknown]
